FAERS Safety Report 7136379-X (Version None)
Quarter: 2010Q4

REPORT INFORMATION
  Report Type: 
  Country: None (occurrence: None)
  Receive Date: 20101206
  Receipt Date: 20101117
  Transmission Date: 20110411
  Serious: No
  Sender: FDA-Public Use
  Company Number: US-BIOGENIDEC-2010BI042031

PATIENT
  Age: 59 Year
  Sex: Female

DRUGS (3)
  1. TYSABRI [Suspect]
     Indication: MULTIPLE SCLEROSIS
     Route: 042
     Dates: start: 20100930
  2. TYSABRI [Suspect]
     Route: 042
     Dates: start: 20080103, end: 20090917
  3. AMPYRA [Concomitant]
     Indication: GAIT DISTURBANCE

REACTIONS (5)
  - ALOPECIA [None]
  - BLADDER DISORDER [None]
  - FATIGUE [None]
  - GASTROINTESTINAL DISORDER [None]
  - HEADACHE [None]
